FAERS Safety Report 8411342-7 (Version None)
Quarter: 2012Q2

REPORT INFORMATION
  Report Type: 
  Country: None (occurrence: None)
  Receive Date: 20120605
  Receipt Date: 20120529
  Transmission Date: 20120825
  Serious: Yes (Hospitalization, Other)
  Sender: FDA-Public Use
  Company Number: US-JNJFOC-20120520614

PATIENT
  Sex: Male

DRUGS (1)
  1. RISPERDAL CONSTA [Suspect]
     Indication: PRODUCT USED FOR UNKNOWN INDICATION
     Route: 042
     Dates: end: 20120416

REACTIONS (5)
  - DRUG DOSE OMISSION [None]
  - INCORRECT ROUTE OF DRUG ADMINISTRATION [None]
  - PRODUCT QUALITY ISSUE [None]
  - IMPRISONMENT [None]
  - TREATMENT NONCOMPLIANCE [None]
